FAERS Safety Report 23117282 (Version 3)
Quarter: 2024Q3

REPORT INFORMATION
  Report Type: Spontaneous
  Country: US (occurrence: US)
  Receive Date: 20231027
  Receipt Date: 20240906
  Transmission Date: 20241017
  Serious: No
  Sender: INCYTE
  Company Number: US-INCYTE CORPORATION-2023IN010968

PATIENT

DRUGS (1)
  1. OPZELURA [Suspect]
     Active Substance: RUXOLITINIB PHOSPHATE
     Dosage: 1.5 PERCENT, 60 GRAM, BID
     Route: 061
     Dates: start: 20230828

REACTIONS (3)
  - Product physical issue [Unknown]
  - Product storage error [Unknown]
  - Drug ineffective [Unknown]
